FAERS Safety Report 12715876 (Version 1)
Quarter: 2016Q3

REPORT INFORMATION
  Report Type: Report from Study
  Country: ID (occurrence: ID)
  Receive Date: 20160906
  Receipt Date: 20160906
  Transmission Date: 20161109
  Serious: Yes (Death, Hospitalization, Other)
  Sender: FDA-Public Use
  Company Number: ID-ROCHE-1683849

PATIENT
  Age: 39 Year
  Sex: Male
  Weight: 71 kg

DRUGS (1)
  1. AVASTIN [Suspect]
     Active Substance: BEVACIZUMAB
     Indication: LUNG NEOPLASM MALIGNANT
     Route: 065
     Dates: start: 20150907

REACTIONS (7)
  - Speech disorder [Unknown]
  - Drug ineffective [Unknown]
  - Lung infection [Unknown]
  - Carcinoembryonic antigen increased [Unknown]
  - Dyspnoea [Not Recovered/Not Resolved]
  - Cough [Unknown]
  - Dyspnoea [Fatal]
